FAERS Safety Report 5130728-X (Version None)
Quarter: 2006Q4

REPORT INFORMATION
  Report Type: 
  Country: None (occurrence: None)
  Receive Date: 20061018
  Receipt Date: 20061018
  Transmission Date: 20070319
  Serious: Yes (Other)
  Sender: FDA-Public Use
  Company Number: None

PATIENT
  Sex: Male
  Weight: 116.1208 kg

DRUGS (1)
  1. VASOTEC [Suspect]
     Indication: HYPERTENSION
     Dosage: 1 TAB DAILY ORAL
     Route: 048
     Dates: start: 20041001

REACTIONS (7)
  - COUGH [None]
  - DIARRHOEA [None]
  - DYSPNOEA [None]
  - EYE IRRITATION [None]
  - LACRIMATION INCREASED [None]
  - NAUSEA [None]
  - THERAPEUTIC RESPONSE UNEXPECTED WITH DRUG SUBSTITUTION [None]
